FAERS Safety Report 18872937 (Version 1)
Quarter: 2021Q1

REPORT INFORMATION
  Report Type: Spontaneous
  Country: CN (occurrence: CN)
  Receive Date: 20210210
  Receipt Date: 20210210
  Transmission Date: 20210420
  Serious: Yes (Hospitalization)
  Sender: FDA-Public Use
  Company Number: CN-UCBSA-2021005697

PATIENT
  Age: 3 Month
  Sex: Female
  Weight: 5.3 kg

DRUGS (1)
  1. LEVETIRACETAM. [Suspect]
     Active Substance: LEVETIRACETAM
     Indication: EPILEPSY
     Dosage: 1.2 MILLILITER, 2X/DAY (BID)
     Route: 048
     Dates: start: 20201226

REACTIONS (2)
  - Bronchitis [Unknown]
  - Transaminases increased [Unknown]

NARRATIVE: CASE EVENT DATE: 20210115
